FAERS Safety Report 20009723 (Version 3)
Quarter: 2022Q3

REPORT INFORMATION
  Report Type: Report from Study
  Country: AR (occurrence: AR)
  Receive Date: 20211029
  Receipt Date: 20220722
  Transmission Date: 20221027
  Serious: Yes (Other)
  Sender: FDA-Public Use
  Company Number: AR-NOVARTISPH-NVSC2020AR214838

PATIENT
  Age: 78 Year
  Sex: Female

DRUGS (2)
  1. COSENTYX [Interacting]
     Active Substance: SECUKINUMAB
     Indication: Psoriasis
     Dosage: 300 MG, QMO
     Route: 058
     Dates: start: 20171218
  2. COSENTYX [Interacting]
     Active Substance: SECUKINUMAB
     Indication: Psoriatic arthropathy

REACTIONS (13)
  - Diabetes mellitus [Unknown]
  - Psoriatic arthropathy [Recovering/Resolving]
  - Anxiety [Unknown]
  - Crying [Unknown]
  - Acne [Unknown]
  - Emotional disorder [Unknown]
  - Malaise [Unknown]
  - Blister [Unknown]
  - Condition aggravated [Unknown]
  - Psoriasis [Unknown]
  - Pain [Unknown]
  - Papule [Unknown]
  - Inappropriate schedule of product administration [Unknown]

NARRATIVE: CASE EVENT DATE: 20200401
